FAERS Safety Report 6334349-2 (Version None)
Quarter: 2009Q3

REPORT INFORMATION
  Report Type: 
  Country: None (occurrence: None)
  Receive Date: 20090831
  Receipt Date: 20090817
  Transmission Date: 20100115
  Serious: Yes (Life-Threatening)
  Sender: FDA-Public Use
  Company Number: GB-RANBAXY-2009RR-26558

PATIENT
  Age: 35 Year
  Sex: Female

DRUGS (8)
  1. DIAZEPAM [Suspect]
     Indication: AGITATION
     Dosage: 5 MG, UNK
     Route: 048
     Dates: start: 20090714, end: 20090718
  2. DIAZEPAM [Suspect]
     Indication: PSYCHOTIC DISORDER
  3. KALETRA [Suspect]
     Indication: HIV INFECTION
     Dosage: 1 DF, TID
     Route: 048
  4. LORAZEPAM [Suspect]
     Indication: AGITATION
     Dosage: 1 MG, UNK
     Route: 048
     Dates: start: 20090718, end: 20090718
  5. LORAZEPAM [Suspect]
     Indication: PSYCHOTIC DISORDER
  6. FERROUS SULFATE TAB [Concomitant]
     Indication: IRON DEFICIENCY ANAEMIA
     Dosage: 200 MG, TID
     Route: 048
  7. NORETHISTERONE [Concomitant]
     Indication: MENORRHAGIA
     Dosage: 5 MG, TID
     Route: 048
     Dates: start: 20090712, end: 20090718
  8. TRUVADA [Concomitant]
     Indication: HIV INFECTION
     Route: 048

REACTIONS (1)
  - RESPIRATORY ARREST [None]
